FAERS Safety Report 20937679 (Version 1)
Quarter: 2022Q2

REPORT INFORMATION
  Report Type: Spontaneous
  Country: US (occurrence: None)
  Receive Date: 20220608
  Receipt Date: 20220608
  Transmission Date: 20220721
  Serious: No
  Sender: FDA-Public Use
  Company Number: None

PATIENT
  Age: 68 Year
  Sex: Male
  Weight: 99 kg

DRUGS (11)
  1. PAXLOVID [Suspect]
     Active Substance: NIRMATRELVIR\RITONAVIR
     Indication: COVID-19
     Dosage: FREQUENCY : TWICE A DAY;?
     Route: 048
     Dates: start: 20220523, end: 20220527
  2. METFORMIN [Concomitant]
     Active Substance: METFORMIN HYDROCHLORIDE
  3. Humulin KwikPen NPH Isophane Insulin human suspension [Concomitant]
  4. LOSARTAN [Concomitant]
     Active Substance: LOSARTAN
  5. SIMVASTATIN [Concomitant]
     Active Substance: SIMVASTATIN
  6. SERTRALINE [Concomitant]
     Active Substance: SERTRALINE HYDROCHLORIDE
  7. VITAMINS [Concomitant]
     Active Substance: VITAMINS
  8. CINNAMON [Concomitant]
     Active Substance: CINNAMON
  9. BABY ASPIRIN [Concomitant]
  10. Advil-PRN [Concomitant]
  11. Acetaminophen-PRN [Concomitant]

REACTIONS (4)
  - COVID-19 [None]
  - Fatigue [None]
  - Headache [None]
  - Dysphonia [None]

NARRATIVE: CASE EVENT DATE: 20220603
